FAERS Safety Report 10226010 (Version 2)
Quarter: 2014Q2

REPORT INFORMATION
  Report Type: Spontaneous
  Country: US (occurrence: US)
  Receive Date: 20140609
  Receipt Date: 20140609
  Transmission Date: 20141212
  Serious: No
  Sender: FDA-Public Use
  Company Number: US-ASTELLAS-2014US002404

PATIENT
  Sex: Male

DRUGS (3)
  1. XTANDI [Suspect]
     Indication: PROSTATE CANCER
     Route: 048
     Dates: start: 20140130
  2. XTANDI [Suspect]
     Route: 048
  3. ANALGESICS [Suspect]
     Indication: PAIN
     Route: 065

REACTIONS (5)
  - Arthralgia [Unknown]
  - Bone pain [Unknown]
  - Asthenia [Unknown]
  - Myalgia [Unknown]
  - Drug dose omission [Unknown]
